FAERS Safety Report 4283172-1 (Version None)
Quarter: 2004Q1

REPORT INFORMATION
  Report Type: 
  Country: None (occurrence: None)
  Receive Date: 20040121
  Receipt Date: 20040108
  Transmission Date: 20041129
  Serious: Yes (Death, Hospitalization)
  Sender: FDA-Public Use
  Company Number: 2003SA000160

PATIENT
  Age: 67 Year
  Sex: Male
  Weight: 111.8 kg

DRUGS (4)
  1. THYMOGLOBULIN [Suspect]
     Indication: PROPHYLAXIS AGAINST TRANSPLANT REJECTION
     Dosage: 1.5 MG/KG/X1; INTRAVENOUS
     Route: 042
     Dates: start: 20030928, end: 20030928
  2. ACETAMINOPHEN [Concomitant]
  3. BENADRYL [Concomitant]
  4. METHYLPREDNISOLONE [Concomitant]

REACTIONS (11)
  - ANAPHYLACTIC SHOCK [None]
  - DISSEMINATED INTRAVASCULAR COAGULATION [None]
  - HAEMATOPOIETIC NEOPLASM [None]
  - HEPATIC FAILURE [None]
  - HYPOTENSION [None]
  - INFUSION RELATED REACTION [None]
  - MEDICATION ERROR [None]
  - MULTI-ORGAN FAILURE [None]
  - MYOCARDIAL INFARCTION [None]
  - NECROSIS [None]
  - POST PROCEDURAL COMPLICATION [None]
